FAERS Safety Report 17877087 (Version 1)
Quarter: 2020Q2

REPORT INFORMATION
  Report Type: Spontaneous
  Country: US (occurrence: US)
  Receive Date: 20200609
  Receipt Date: 20200609
  Transmission Date: 20200714
  Serious: No
  Sender: FDA-Public Use
  Company Number: US-ACELLA PHARMACEUTICALS, LLC-2085589

PATIENT
  Sex: Female
  Weight: 89.09 kg

DRUGS (3)
  1. ESTRADIOL. [Concomitant]
     Active Substance: ESTRADIOL
     Route: 065
  2. NP THYROID [Suspect]
     Active Substance: LEVOTHYROXINE\LIOTHYRONINE
     Indication: HYPOTHYROIDISM
     Route: 048
     Dates: start: 201801
  3. PROGESTERONE. [Concomitant]
     Active Substance: PROGESTERONE
     Route: 065

REACTIONS (15)
  - Tremor [Unknown]
  - Insomnia [Not Recovered/Not Resolved]
  - Arrhythmia [Recovered/Resolved]
  - Dyspnoea [Unknown]
  - Blood thyroid stimulating hormone decreased [Not Recovered/Not Resolved]
  - Hyperthyroidism [Not Recovered/Not Resolved]
  - Palpitations [Recovered/Resolved]
  - Product odour abnormal [Not Recovered/Not Resolved]
  - Tri-iodothyronine increased [Not Recovered/Not Resolved]
  - Rash [Unknown]
  - Hyperhidrosis [Not Recovered/Not Resolved]
  - Product physical issue [Not Recovered/Not Resolved]
  - Weight decreased [Not Recovered/Not Resolved]
  - Alopecia [Not Recovered/Not Resolved]
  - Product taste abnormal [Not Recovered/Not Resolved]

NARRATIVE: CASE EVENT DATE: 2018
